FAERS Safety Report 16154775 (Version 1)
Quarter: 2019Q2

REPORT INFORMATION
  Report Type: Spontaneous
  Country: US (occurrence: US)
  Receive Date: 20190403
  Receipt Date: 20190403
  Transmission Date: 20190711
  Serious: No
  Sender: FDA-Public Use
  Company Number: US-ALKERMES INC.-ALK-2019-001732

PATIENT
  Sex: Male

DRUGS (2)
  1. ALUMINIUM HYDROXIDE GEL W/MAGNESIUM SILICATE [Suspect]
     Active Substance: ALUMINUM HYDROXIDE\MAGNESIUM SILICATE
     Indication: PRODUCT USED FOR UNKNOWN INDICATION
  2. VIVITROL [Suspect]
     Active Substance: NALTREXONE
     Indication: PRODUCT USED FOR UNKNOWN INDICATION
     Dosage: 380 MG, QMO
     Route: 030

REACTIONS (2)
  - Dyspepsia [Not Recovered/Not Resolved]
  - Hypersensitivity [Recovered/Resolved]
